FAERS Safety Report 16100014 (Version 3)
Quarter: 2019Q2

REPORT INFORMATION
  Report Type: Spontaneous
  Country: US (occurrence: US)
  Receive Date: 20190321
  Receipt Date: 20190515
  Transmission Date: 20190711
  Serious: Yes (Other)
  Sender: FDA-Public Use
  Company Number: US-PURDUE-USA-2019-0146565

PATIENT
  Sex: Male
  Weight: 66.21 kg

DRUGS (1)
  1. COLACE [Suspect]
     Active Substance: DOCUSATE SODIUM
     Indication: CONSTIPATION
     Dosage: (2 X 50 MG) 100 MG, UNK
     Route: 048
     Dates: start: 201903

REACTIONS (2)
  - Foreign body in respiratory tract [Recovered/Resolved]
  - Product size issue [Unknown]
